FAERS Safety Report 25738994 (Version 1)
Quarter: 2025Q3

REPORT INFORMATION
  Report Type: Spontaneous
  Country: US (occurrence: US)
  Receive Date: 20250829
  Receipt Date: 20250829
  Transmission Date: 20251020
  Serious: Yes (Other)
  Sender: AMGEN
  Company Number: US-AMGEN-USASP2025167999

PATIENT
  Age: 61 Year
  Sex: Female

DRUGS (1)
  1. PROLIA [Suspect]
     Active Substance: DENOSUMAB
     Indication: Osteoporosis postmenopausal
     Dosage: 60 MILLIGRAM, Q6MO
     Route: 058
     Dates: start: 2016, end: 202409

REACTIONS (7)
  - Osteonecrosis of jaw [Not Recovered/Not Resolved]
  - Lymphadenopathy [Unknown]
  - Tooth fracture [Unknown]
  - Bone growth stimulation [Unknown]
  - Feeling abnormal [Unknown]
  - Therapeutic product effect incomplete [Unknown]
  - Therapy interrupted [Unknown]

NARRATIVE: CASE EVENT DATE: 20241201
